FAERS Safety Report 7921091-7 (Version None)
Quarter: 2011Q4

REPORT INFORMATION
  Report Type: 
  Country: None (occurrence: None)
  Receive Date: 20111117
  Receipt Date: 20111028
  Transmission Date: 20120403
  Serious: Yes (Other)
  Sender: FDA-Public Use
  Company Number: DE-MERCK-1110DEU00090

PATIENT
  Sex: Female

DRUGS (2)
  1. JANUVIA [Suspect]
     Route: 048
  2. JANUMET [Suspect]
     Route: 048

REACTIONS (2)
  - MALAISE [None]
  - GASTROINTESTINAL INFECTION [None]
